FAERS Safety Report 6286706-0 (Version None)
Quarter: 2009Q3

REPORT INFORMATION
  Report Type: 
  Country: None (occurrence: None)
  Receive Date: 20090728
  Receipt Date: 20090715
  Transmission Date: 20100115
  Serious: Yes (Hospitalization)
  Sender: FDA-Public Use
  Company Number: US-AVENTIS-200916245US

PATIENT
  Sex: Male

DRUGS (4)
  1. APIDRA [Suspect]
     Dosage: DOSE: SLIDING SCALE
     Route: 051
  2. LANTUS [Suspect]
     Dosage: DOSE: UNK
     Route: 058
  3. OPTICLIK (INSULIN INJECTION PEN) [Suspect]
  4. OPTICLIK (INSULIN INJECTION PEN) [Suspect]

REACTIONS (4)
  - ANKLE FRACTURE [None]
  - HYPOAESTHESIA [None]
  - ROAD TRAFFIC ACCIDENT [None]
  - STERNAL FRACTURE [None]
